FAERS Safety Report 23149766 (Version 1)
Quarter: 2023Q4

REPORT INFORMATION
  Report Type: Spontaneous
  Country: US (occurrence: None)
  Receive Date: 20231104
  Receipt Date: 20231104
  Transmission Date: 20240110
  Serious: No
  Sender: FDA-Public Use
  Company Number: None

PATIENT
  Age: 45 Year
  Sex: Female
  Weight: 146.25 kg

DRUGS (8)
  1. LISDEXAMFETAMINE DIMESYLATE [Suspect]
     Active Substance: LISDEXAMFETAMINE DIMESYLATE
     Indication: Binge eating
     Dosage: OTHER QUANTITY : 1 CAPSULE(S);?
     Route: 048
     Dates: end: 20231016
  2. OMEPRAZOLE [Concomitant]
     Active Substance: OMEPRAZOLE
  3. PAROXETINE [Concomitant]
     Active Substance: PAROXETINE
  4. PREGABALIN [Concomitant]
     Active Substance: PREGABALIN
  5. METFORMIN [Concomitant]
     Active Substance: METFORMIN HYDROCHLORIDE
  6. FISH OIL [Concomitant]
     Active Substance: FISH OIL
  7. VITAMIN B [Concomitant]
     Active Substance: VITAMIN B
  8. VITAMIN D [Concomitant]
     Active Substance: VITAMIN D NOS

REACTIONS (8)
  - Amnesia [None]
  - Mania [None]
  - Loss of employment [None]
  - Abnormal behaviour [None]
  - Blood pressure systolic increased [None]
  - Therapy cessation [None]
  - Depressed mood [None]
  - Feeling guilty [None]

NARRATIVE: CASE EVENT DATE: 20230904
